FAERS Safety Report 8726535 (Version 2)
Quarter: 2012Q4

REPORT INFORMATION
  Report Type: 
  Country: JP (occurrence: JP)
  Receive Date: 20120816
  Receipt Date: 20120829
  Transmission Date: 20130627
  Serious: Yes (Other)
  Sender: FDA-Public Use
  Company Number: JP-ALLERGAN-1210985US

PATIENT
  Age: 75 Year
  Sex: Male

DRUGS (6)
  1. LUMIGAN [Suspect]
     Indication: PSEUDOEXFOLIATION GLAUCOMA
     Dosage: 1 Gtt, qhs
     Route: 047
     Dates: start: 20110722
  2. RYSMON TG [Concomitant]
     Dosage: UNK
     Route: 047
     Dates: start: 20080116, end: 20120420
  3. TRUSOPT [Concomitant]
     Dosage: UNK
     Route: 047
     Dates: start: 20070815
  4. TIMOPTOL [Concomitant]
     Dosage: UNK
     Route: 047
     Dates: start: 20070420
  5. DIAMOX [Concomitant]
     Dosage: UNK
     Dates: start: 20120217, end: 20120727
  6. ASPARA POTASSIUM [Concomitant]
     Dosage: UNK
     Dates: start: 20120217, end: 20120727

REACTIONS (1)
  - Intraocular pressure increased [Not Recovered/Not Resolved]
